FAERS Safety Report 9747430 (Version 1)
Quarter: 2013Q4

REPORT INFORMATION
  Report Type: Spontaneous
  Country: US (occurrence: US)
  Receive Date: 20131212
  Receipt Date: 20131212
  Transmission Date: 20140711
  Serious: No
  Sender: FDA-Public Use
  Company Number: US-BIOGENIDEC-2013BI117583

PATIENT
  Sex: Male

DRUGS (1)
  1. TYSABRI [Suspect]
     Indication: MULTIPLE SCLEROSIS
     Route: 042
     Dates: start: 20100505

REACTIONS (4)
  - Cataract [Not Recovered/Not Resolved]
  - Post procedural complication [Recovered/Resolved]
  - Sensitivity to weather change [Not Recovered/Not Resolved]
  - Multiple sclerosis [Not Recovered/Not Resolved]
